FAERS Safety Report 5407062-3 (Version None)
Quarter: 2007Q3

REPORT INFORMATION
  Report Type: 
  Country: None (occurrence: None)
  Receive Date: 20070807
  Receipt Date: 20070727
  Transmission Date: 20080115
  Serious: Yes (Hospitalization)
  Sender: FDA-Public Use
  Company Number: FR-JNJFOC-20070601696

PATIENT
  Sex: Male

DRUGS (4)
  1. PREZISTA [Suspect]
     Indication: HIV INFECTION
     Route: 048
  2. MK0518 [Concomitant]
     Indication: HIV INFECTION
     Route: 065
  3. NORVIR [Concomitant]
     Indication: HIV INFECTION
     Route: 048
  4. TRUVADA [Concomitant]
     Indication: HIV INFECTION
     Route: 048

REACTIONS (5)
  - ASPARTATE AMINOTRANSFERASE INCREASED [None]
  - GENERAL PHYSICAL HEALTH DETERIORATION [None]
  - INFLUENZA LIKE ILLNESS [None]
  - PYREXIA [None]
  - STEVENS-JOHNSON SYNDROME [None]
